FAERS Safety Report 24932289 (Version 1)
Quarter: 2025Q1

REPORT INFORMATION
  Report Type: Report from Study
  Country: US (occurrence: US)
  Receive Date: 20250205
  Receipt Date: 20250205
  Transmission Date: 20250409
  Serious: No
  Sender: EXELIXIS
  Company Number: US-EXELIXIS-CABO-24080175

PATIENT
  Sex: Female

DRUGS (19)
  1. CABOMETYX [Suspect]
     Active Substance: CABOZANTINIB S-MALATE
     Indication: Renal cancer
     Dosage: 40 MG, QD
     Route: 048
  2. OPDIVO [Suspect]
     Active Substance: NIVOLUMAB
     Indication: Renal cancer
  3. INLYTA [Suspect]
     Active Substance: AXITINIB
     Indication: Renal cancer
  4. AMOXICILLIN [Concomitant]
     Active Substance: AMOXICILLIN
  5. BUPRENORPHINE [Concomitant]
     Active Substance: BUPRENORPHINE
  6. DOCUSATE CALCIUM [Concomitant]
     Active Substance: DOCUSATE CALCIUM
  7. METHADONE HYDROCHLORIDE [Concomitant]
     Active Substance: METHADONE HYDROCHLORIDE
  8. MIRALAX [Concomitant]
     Active Substance: POLYETHYLENE GLYCOL 3350
  9. MORPHINE SULFATE [Concomitant]
     Active Substance: MORPHINE SULFATE
  10. VITAMINS [Concomitant]
     Active Substance: VITAMINS
  11. SENNA [Concomitant]
     Active Substance: SENNOSIDES
  12. VITAMIN B [Concomitant]
     Active Substance: VITAMIN B
  13. VITAMIN D [Concomitant]
     Active Substance: VITAMIN D NOS
  14. ZINC [Concomitant]
     Active Substance: ZINC
  15. DIPHENOXYLATE [Concomitant]
     Active Substance: DIPHENOXYLATE
  16. HYDROCODONE [Concomitant]
     Active Substance: HYDROCODONE
  17. OXYCODONE HYDROCHLORIDE [Concomitant]
     Active Substance: OXYCODONE HYDROCHLORIDE
  18. PREDNISONE [Concomitant]
     Active Substance: PREDNISONE
  19. TRAZODONE HCL [Concomitant]
     Active Substance: TRAZODONE HYDROCHLORIDE

REACTIONS (4)
  - Diarrhoea [Unknown]
  - Stomatitis [Unknown]
  - Adverse drug reaction [Recovered/Resolved]
  - Skin ulcer [Unknown]
